FAERS Safety Report 7120006-1 (Version None)
Quarter: 2010Q4

REPORT INFORMATION
  Report Type: 
  Country: None (occurrence: None)
  Receive Date: 20101123
  Receipt Date: 20101118
  Transmission Date: 20110411
  Serious: Yes (Hospitalization)
  Sender: FDA-Public Use
  Company Number: GB-PFIZER INC-2010154642

PATIENT
  Age: 74 Year
  Sex: Female

DRUGS (8)
  1. SUTENT [Suspect]
     Indication: SMALL CELL LUNG CANCER LIMITED STAGE
     Dosage: 25 MG, 1X/DAY
     Route: 048
     Dates: start: 20100611, end: 20101107
  2. MOVICOL [Concomitant]
     Indication: CONSTIPATION
     Dosage: 2 SACHETS, 2X/DAY
     Route: 048
     Dates: start: 20101115
  3. LANSOPRAZOLE [Concomitant]
     Indication: DYSPEPSIA
     Dosage: 30 MG, 1X/DAY
     Route: 048
     Dates: start: 20100719
  4. TRAMADOL [Concomitant]
     Indication: ABDOMINAL PAIN
     Dosage: 50 MG, 2X/DAY
     Route: 048
     Dates: start: 20101115
  5. ACETAMINOPHEN [Concomitant]
     Indication: ABDOMINAL PAIN
     Dosage: 1000 MG, 1X/DAY
     Route: 048
     Dates: start: 20101115
  6. BENDROFLUMETHIAZIDE [Concomitant]
     Indication: HYPERTENSION
     Dosage: 2.5 MG, 1X/DAY
     Route: 048
     Dates: start: 20101115
  7. RAMIPRIL [Concomitant]
     Indication: HYPERTENSION
     Dosage: 5 MG, 1X/DAY
     Route: 048
     Dates: start: 20101115
  8. LEVOTHYROXINE [Concomitant]
     Indication: HYPOTHYROIDISM
     Dosage: 50 MG, UNK
     Route: 048
     Dates: start: 20101115

REACTIONS (6)
  - ABDOMINAL PAIN LOWER [None]
  - CONFUSIONAL STATE [None]
  - CONSTIPATION [None]
  - HYPOTHYROIDISM [None]
  - MEMORY IMPAIRMENT [None]
  - OEDEMA PERIPHERAL [None]
